FAERS Safety Report 7770038-5 (Version None)
Quarter: 2011Q3

REPORT INFORMATION
  Report Type: 
  Country: None (occurrence: None)
  Receive Date: 20110922
  Receipt Date: 20110113
  Transmission Date: 20111222
  Serious: No
  Sender: FDA-Public Use
  Company Number: US-ASTRAZENECA-2005UW13297

PATIENT
  Age: 36 Year
  Sex: Female
  Weight: 102.1 kg

DRUGS (10)
  1. ABILIFY [Concomitant]
     Dates: start: 20060101
  2. SEROQUEL [Suspect]
     Indication: SLEEP DISORDER
     Route: 048
     Dates: start: 20021015, end: 20030307
  3. SEROQUEL [Suspect]
     Route: 048
     Dates: start: 20030227
  4. SEROQUEL [Suspect]
     Route: 048
     Dates: start: 20030307
  5. SEROQUEL [Suspect]
     Route: 048
     Dates: start: 20030307
  6. SEROQUEL [Suspect]
     Indication: BIPOLAR DISORDER
     Route: 048
     Dates: start: 20021015, end: 20030307
  7. TRAZODONE HCL [Concomitant]
     Dates: start: 20060101
  8. ABILIFY [Concomitant]
     Dates: start: 20050525
  9. SEROQUEL [Suspect]
     Route: 048
     Dates: start: 20030227
  10. TOPAMAX [Concomitant]
     Dates: start: 20070618

REACTIONS (4)
  - DIABETES MELLITUS [None]
  - TYPE 2 DIABETES MELLITUS [None]
  - HYPERINSULINAEMIA [None]
  - DIABETES MELLITUS INADEQUATE CONTROL [None]
